FAERS Safety Report 7181384-0 (Version None)
Quarter: 2010Q4

REPORT INFORMATION
  Report Type: 
  Country: None (occurrence: None)
  Receive Date: 20101221
  Receipt Date: 20100423
  Transmission Date: 20110411
  Serious: No
  Sender: FDA-Public Use
  Company Number: US-AMGEN-KDL408046

PATIENT

DRUGS (2)
  1. ENBREL [Suspect]
     Indication: ANKYLOSING SPONDYLITIS
     Dosage: UNK UNK, UNK
     Dates: start: 20100205
  2. METHOTREXATE [Concomitant]
     Dosage: 2.5 MG, 4 TIMES/WK
     Route: 048

REACTIONS (4)
  - CHILLS [None]
  - COUGH [None]
  - FATIGUE [None]
  - PYREXIA [None]
